FAERS Safety Report 8168906-8 (Version None)
Quarter: 2012Q1

REPORT INFORMATION
  Report Type: 
  Country: None (occurrence: None)
  Receive Date: 20120227
  Receipt Date: 20120215
  Transmission Date: 20120608
  Serious: Yes (Hospitalization)
  Sender: FDA-Public Use
  Company Number: CA-ELI_LILLY_AND_COMPANY-CA201111004180

PATIENT
  Age: 63 Year
  Sex: Female

DRUGS (19)
  1. ANALGESICS [Concomitant]
  2. OMEPRAZOLE [Concomitant]
  3. TEMAZEPAM [Concomitant]
  4. HUMALOG [Concomitant]
  5. LEVOTHYROXINE SODIUM [Concomitant]
  6. VITAMIN D [Concomitant]
  7. FORTEO [Suspect]
     Dosage: 20 UG, QD
     Route: 058
  8. INSULIN [Concomitant]
  9. DILANTIN [Concomitant]
  10. FORTEO [Suspect]
     Indication: OSTEOPOROSIS
     Dosage: 20 UG, QD
     Route: 058
     Dates: start: 20110703, end: 20111021
  11. GABAPENTIN [Concomitant]
  12. OXYCONTIN [Concomitant]
  13. NOVOSPIROTON [Concomitant]
  14. FORTEO [Suspect]
     Dosage: 20 UG, QD
     Route: 058
     Dates: start: 20111220
  15. PREDNISONE [Concomitant]
  16. METFORMIN HCL [Concomitant]
  17. SINGULAIR [Concomitant]
  18. FUROSEMIDE [Concomitant]
  19. LANTUS [Concomitant]

REACTIONS (8)
  - MEDICATION ERROR [None]
  - COMMUNICATION DISORDER [None]
  - BLOOD CALCIUM INCREASED [None]
  - SURGERY [None]
  - PAIN [None]
  - POLYMYALGIA RHEUMATICA [None]
  - WHITE BLOOD CELL COUNT INCREASED [None]
  - BACK PAIN [None]
